FAERS Safety Report 9033697 (Version 1)
Quarter: 2013Q1

REPORT INFORMATION
  Report Type: Spontaneous
  Country: US (occurrence: US)
  Receive Date: 20130128
  Receipt Date: 20130128
  Transmission Date: 20140127
  Serious: Yes (Death)
  Sender: FDA-Public Use
  Company Number: US-AMGEN-USASP2012079743

PATIENT
  Age: 58 Year
  Sex: Female

DRUGS (14)
  1. ENBREL [Suspect]
     Indication: PRODUCT USED FOR UNKNOWN INDICATION
     Dosage: 50 MG/ML, QWK
     Route: 058
  2. PREDNISONE [Concomitant]
     Dosage: 5 MG, UNK
  3. TRACLEER                           /01587701/ [Concomitant]
     Dosage: 125 MG, UNK
  4. LASIX                              /00032601/ [Concomitant]
     Dosage: 40 MG, UNK
  5. SKELAXIN                           /00611501/ [Concomitant]
     Dosage: 800 MG, UNK
  6. LORTAB                             /00607101/ [Concomitant]
     Dosage: 10-500 MG, UNK
  7. SPIRONOLACTON [Concomitant]
     Dosage: 25 MG, UNK
  8. KLOR-CON M20 [Concomitant]
     Dosage: 20 MEQ, ER
  9. ULORIC [Concomitant]
     Dosage: 80 MG, UNK
  10. LEVOTHROID [Concomitant]
     Dosage: 25 MCG, UNK
  11. PRILOSEC                           /00661201/ [Concomitant]
     Dosage: 40 MG, UNK
  12. ULTRAM [Concomitant]
     Dosage: 300 MG, UNK
  13. ESTRADIOL W/NORETHISTERONE [Concomitant]
     Dosage: 1-0.5 MG
  14. HYDROXYCHLOROQUINE [Concomitant]
     Dosage: 200 MG, UNK

REACTIONS (1)
  - Death [Fatal]
